FAERS Safety Report 13448007 (Version 2)
Quarter: 2017Q2

REPORT INFORMATION
  Report Type: Spontaneous
  Country: US (occurrence: US)
  Receive Date: 20170417
  Receipt Date: 20170523
  Transmission Date: 20170830
  Serious: Yes (Hospitalization, Other)
  Sender: FDA-Public Use
  Company Number: US-CELGENEUS-USA-20170404456

PATIENT
  Age: 77 Year
  Sex: Female
  Weight: 60.38 kg

DRUGS (6)
  1. REVLIMID [Suspect]
     Active Substance: LENALIDOMIDE
     Dosage: 25 MILLIGRAM
     Route: 048
     Dates: start: 201611
  2. ACYCLOVIR. [Concomitant]
     Active Substance: ACYCLOVIR
     Indication: ANTIVIRAL PROPHYLAXIS
     Dosage: 800 MILLIGRAM
     Route: 065
  3. NORVASC [Concomitant]
     Active Substance: AMLODIPINE BESYLATE
     Indication: HYPERTENSION
     Dosage: 5 MILLIGRAM
     Route: 065
  4. DEXAMETHASONE. [Concomitant]
     Active Substance: DEXAMETHASONE
     Indication: ADJUVANT THERAPY
     Dosage: 4 MILLIGRAM
     Route: 065
  5. LEXAPRO [Concomitant]
     Active Substance: ESCITALOPRAM OXALATE
     Indication: DEPRESSION
     Dosage: 10 MILLIGRAM
     Route: 065
  6. REVLIMID [Suspect]
     Active Substance: LENALIDOMIDE
     Indication: PLASMA CELL MYELOMA
     Dosage: 10 MILLIGRAM
     Route: 048
     Dates: start: 201110

REACTIONS (4)
  - Drug ineffective [Unknown]
  - Bone pain [Not Recovered/Not Resolved]
  - Plasma cell myeloma [Not Recovered/Not Resolved]
  - Asthenia [Not Recovered/Not Resolved]

NARRATIVE: CASE EVENT DATE: 20170405
